FAERS Safety Report 5464681-6 (Version None)
Quarter: 2007Q3

REPORT INFORMATION
  Report Type: 
  Country: None (occurrence: None)
  Receive Date: 20070921
  Receipt Date: 20070911
  Transmission Date: 20080115
  Serious: Yes (Death, Other)
  Sender: FDA-Public Use
  Company Number: US-PFIZER INC-2007001377

PATIENT
  Sex: Male
  Weight: 61.2 kg

DRUGS (5)
  1. CHANTIX [Suspect]
     Indication: SMOKING CESSATION THERAPY
     Route: 048
  2. ALL OTHER THERAPEUTIC PRODUCTS [Concomitant]
     Indication: DEMENTIA ALZHEIMER'S TYPE
  3. CELEBREX [Concomitant]
  4. CYMBALTA [Concomitant]
  5. NAMENDA [Concomitant]

REACTIONS (6)
  - BRONCHIAL CARCINOMA [None]
  - DEMENTIA ALZHEIMER'S TYPE [None]
  - HAEMOPTYSIS [None]
  - LUNG DISORDER [None]
  - MYOCARDIAL INFARCTION [None]
  - WEIGHT DECREASED [None]
